FAERS Safety Report 22646450 (Version 1)
Quarter: 2023Q2

REPORT INFORMATION
  Report Type: Spontaneous
  Country: None (occurrence: IE)
  Receive Date: 20230627
  Receipt Date: 20230627
  Transmission Date: 20230721
  Serious: Yes (Hospitalization)
  Sender: FDA-Public Use
  Company Number: IE-Ascend Therapeutics US, LLC-2143168

PATIENT
  Age: 39 Year
  Sex: Female

DRUGS (8)
  1. ANDROGEL [Suspect]
     Active Substance: TESTOSTERONE
     Indication: Product used for unknown indication
     Route: 065
     Dates: start: 20230505, end: 20230509
  2. TESTOSTERONE [Suspect]
     Active Substance: TESTOSTERONE
     Route: 065
     Dates: start: 20230505, end: 20230509
  3. LUVERIS [Suspect]
     Active Substance: LUTROPIN ALFA
     Route: 065
     Dates: start: 20230513, end: 20230526
  4. ETHINYL ESTRADIOL\NORGESTIMATE [Suspect]
     Active Substance: ETHINYL ESTRADIOL\NORGESTIMATE
     Route: 048
     Dates: start: 20230415, end: 20230501
  5. CETROTIDE [Suspect]
     Active Substance: CETRORELIX ACETATE
     Route: 065
     Dates: start: 20230513, end: 20230526
  6. ESTRADIOL [Suspect]
     Active Substance: ESTRADIOL
     Route: 065
     Dates: start: 20230513, end: 20230516
  7. ESTRADIOL [Suspect]
     Active Substance: ESTRADIOL
     Route: 065
     Dates: start: 20230513, end: 20230526
  8. GONAL-F [Suspect]
     Active Substance: FOLLITROPIN
     Route: 065
     Dates: start: 20230513, end: 20230526

REACTIONS (3)
  - Arterial thrombosis [Not Recovered/Not Resolved]
  - Vertebrobasilar artery dissection [Not Recovered/Not Resolved]
  - Product use issue [None]

NARRATIVE: CASE EVENT DATE: 20230505
